FAERS Safety Report 8913417 (Version 1)
Quarter: 2012Q4

REPORT INFORMATION
  Report Type: 
  Country: IT (occurrence: IT)
  Receive Date: 20121116
  Receipt Date: 20121116
  Transmission Date: 20130627
  Serious: Yes (Hospitalization)
  Sender: FDA-Public Use
  Company Number: IT-WATSON-2012-19415

PATIENT
  Age: 1 Year
  Sex: Male

DRUGS (3)
  1. PARACETAMOL [Suspect]
     Indication: PYREXIA
     Dosage: 250 mg, daily
     Route: 054
     Dates: start: 20120523, end: 20120527
  2. AMOXICILLIN-CLAVULANATE [Suspect]
     Indication: COUGH
     Dosage: 10.5 ml, daily
     Route: 048
     Dates: start: 20120523, end: 20120527
  3. SALBUTAMOL (UNKNOWN) [Suspect]
     Indication: PRODUCTIVE COUGH
     Dosage: UNK, unknown
     Route: 055

REACTIONS (3)
  - Acute haemorrhagic oedema of infancy [Recovered/Resolved]
  - Purpura [Recovered/Resolved]
  - White blood cell count decreased [None]
